FAERS Safety Report 9173843 (Version 1)
Quarter: 2013Q1

REPORT INFORMATION
  Report Type: Report from Study
  Country: MY (occurrence: MY)
  Receive Date: 20130320
  Receipt Date: 20130320
  Transmission Date: 20140127
  Serious: Yes (Hospitalization)
  Sender: FDA-Public Use
  Company Number: MY-JNJFOC-20110709905

PATIENT
  Age: 48 Year
  Sex: Female
  Weight: 55 kg

DRUGS (18)
  1. GOLIMUMAB [Suspect]
     Indication: RHEUMATOID ARTHRITIS
     Route: 042
     Dates: start: 20100312
  2. GOLIMUMAB [Suspect]
     Indication: RHEUMATOID ARTHRITIS
     Route: 042
     Dates: start: 20110701
  3. METHOTREXATE [Suspect]
     Indication: RHEUMATOID ARTHRITIS
     Route: 048
     Dates: end: 20110717
  4. FOLATE [Concomitant]
     Route: 048
     Dates: start: 20030218
  5. CELEBREX [Concomitant]
     Indication: ARTHRALGIA
     Route: 048
     Dates: start: 20021126
  6. CELEBREX [Concomitant]
     Indication: ARTHRALGIA
     Route: 048
     Dates: start: 20110813, end: 20110816
  7. CELEBREX [Concomitant]
     Indication: RHEUMATOID ARTHRITIS
     Route: 048
     Dates: start: 20021126
  8. CELEBREX [Concomitant]
     Indication: RHEUMATOID ARTHRITIS
     Route: 048
     Dates: start: 20110813, end: 20110816
  9. ROCALTROL [Concomitant]
     Indication: STEROID THERAPY
     Route: 048
     Dates: start: 20070510
  10. RANITIDINE [Concomitant]
     Indication: DYSPEPSIA
     Route: 048
     Dates: start: 20070510
  11. PREDNISOLONE [Concomitant]
     Indication: ARTHRALGIA
     Route: 048
     Dates: start: 20090226, end: 20110724
  12. PREDNISOLONE [Concomitant]
     Indication: ARTHRALGIA
     Route: 048
     Dates: start: 20110813, end: 20110816
  13. PREDNISOLONE [Concomitant]
     Indication: RHEUMATOID ARTHRITIS
     Route: 048
     Dates: start: 20090226, end: 20110724
  14. PREDNISOLONE [Concomitant]
     Indication: RHEUMATOID ARTHRITIS
     Route: 048
     Dates: start: 20110813, end: 20110816
  15. DAONIL [Concomitant]
     Indication: DIABETES MELLITUS
     Route: 048
     Dates: start: 199801, end: 20110719
  16. METFORMIN [Concomitant]
     Indication: DIABETES MELLITUS
     Route: 048
     Dates: start: 20110826
  17. METFORMIN [Concomitant]
     Indication: DIABETES MELLITUS
     Route: 048
     Dates: start: 2003, end: 20110719
  18. METFORMIN [Concomitant]
     Indication: DIABETES MELLITUS
     Route: 048
     Dates: start: 20110723, end: 20110724

REACTIONS (1)
  - Rectal abscess [Recovered/Resolved]
